FAERS Safety Report 4802320-5 (Version None)
Quarter: 2005Q4

REPORT INFORMATION
  Report Type: 
  Country: None (occurrence: None)
  Receive Date: 20051012
  Receipt Date: 20051006
  Transmission Date: 20060501
  Serious: Yes (Other)
  Sender: FDA-Public Use
  Company Number: THQ2005A00867

PATIENT
  Age: 69 Year
  Sex: Female

DRUGS (6)
  1. LANSOPRAZOLE [Suspect]
     Indication: GASTRIC ULCER
  2. THEOPHYLLINE [Concomitant]
  3. SALMETEROL [Concomitant]
  4. FENOTEROL [Concomitant]
  5. BECLOMETHASONE  DIPROPINOATE [Concomitant]
  6. GUANFACINUM [Concomitant]

REACTIONS (1)
  - CUTANEOUS LUPUS ERYTHEMATOSUS [None]
